FAERS Safety Report 12370561 (Version 1)
Quarter: 2016Q2

REPORT INFORMATION
  Report Type: Spontaneous
  Country: US (occurrence: None)
  Receive Date: 20160513
  Receipt Date: 20160513
  Transmission Date: 20160815
  Serious: Yes (Hospitalization)
  Sender: FDA-Public Use
  Company Number: None

PATIENT
  Age: 69 Year
  Sex: Male
  Weight: 82.6 kg

DRUGS (2)
  1. RIVAROXABAN [Suspect]
     Active Substance: RIVAROXABAN
     Indication: SURGERY
     Route: 058
     Dates: start: 20160416, end: 20160417
  2. CEFAZOLIN [Suspect]
     Active Substance: CEFAZOLIN
     Route: 042
     Dates: start: 20160415, end: 20160416

REACTIONS (3)
  - Erythema [None]
  - Rash [None]
  - Swelling face [None]

NARRATIVE: CASE EVENT DATE: 20160417
